FAERS Safety Report 16489513 (Version 1)
Quarter: 2019Q2

REPORT INFORMATION
  Report Type: Spontaneous
  Country: US (occurrence: US)
  Receive Date: 20190517
  Receipt Date: 20190517
  Transmission Date: 20190711
  Serious: No
  Sender: FDA-Public Use
  Company Number: None

PATIENT
  Age: 44 Year
  Sex: Female

DRUGS (1)
  1. HARVONI [Suspect]
     Active Substance: LEDIPASVIR\SOFOSBUVIR
     Indication: HEPATITIS VIRAL
     Dosage: ?          OTHER DOSE:90/400MG;?
     Route: 048
     Dates: start: 20190408

REACTIONS (3)
  - Weight decreased [None]
  - Pain in extremity [None]
  - Mobility decreased [None]

NARRATIVE: CASE EVENT DATE: 20190408
